FAERS Safety Report 12309014 (Version 1)
Quarter: 2016Q2

REPORT INFORMATION
  Report Type: Spontaneous
  Country: FR (occurrence: FR)
  Receive Date: 20160427
  Receipt Date: 20160427
  Transmission Date: 20160815
  Serious: Yes (Hospitalization)
  Sender: FDA-Public Use
  Company Number: FR-009507513-1604FRA013567

PATIENT
  Age: 72 Year
  Sex: Male

DRUGS (2)
  1. BILASKA [Suspect]
     Active Substance: BILASTINE
     Indication: RHINITIS ALLERGIC
     Dosage: 1 DOSAGE FORM IN THE MORNING
     Route: 048
     Dates: end: 201601
  2. EZETROL [Suspect]
     Active Substance: EZETIMIBE
     Indication: HYPERLIPIDAEMIA
     Dosage: 10 MG, QPM (1 DOSAGE FORM IN THE EVENING)
     Route: 048
     Dates: start: 2015, end: 20160208

REACTIONS (1)
  - Thrombocytopenic purpura [Recovered/Resolved]

NARRATIVE: CASE EVENT DATE: 20160122
